FAERS Safety Report 25066770 (Version 2)
Quarter: 2025Q1

REPORT INFORMATION
  Report Type: Spontaneous
  Country: PL (occurrence: PL)
  Receive Date: 20250312
  Receipt Date: 20250316
  Transmission Date: 20250409
  Serious: Yes (Death)
  Sender: UCB
  Company Number: PL-UCBSA-2025014270

PATIENT
  Age: 31 Year
  Sex: Female

DRUGS (1)
  1. BIMZELX [Suspect]
     Active Substance: BIMEKIZUMAB-BKZX
     Indication: Product used for unknown indication

REACTIONS (1)
  - Death [Fatal]
